FAERS Safety Report 10531669 (Version 1)
Quarter: 2014Q4

REPORT INFORMATION
  Report Type: Report from Study
  Country: MX (occurrence: MX)
  Receive Date: 20141021
  Receipt Date: 20141021
  Transmission Date: 20150529
  Serious: Yes (Death, Other)
  Sender: FDA-Public Use
  Company Number: PHHY2014MX136443

PATIENT
  Age: 71 Year
  Sex: Female

DRUGS (3)
  1. ONBREZ BREEZHALER [Suspect]
     Active Substance: INDACATEROL
     Indication: OFF LABEL USE
  2. SERETIDE [Concomitant]
     Active Substance: FLUTICASONE FUROATE\SALMETEROL XINAFOATE
     Indication: PULMONARY FIBROSIS
     Dosage: 2 DF, QD
     Route: 065
  3. ONBREZ BREEZHALER [Suspect]
     Active Substance: INDACATEROL
     Indication: PULMONARY FIBROSIS
     Dosage: 150 UG, QD
     Route: 055
     Dates: start: 201210

REACTIONS (4)
  - Arrhythmia [Unknown]
  - Malaise [Unknown]
  - Cardiac arrest [Fatal]
  - Gastritis [Unknown]
